FAERS Safety Report 9603115 (Version 1)
Quarter: 2013Q4

REPORT INFORMATION
  Report Type: Spontaneous
  Country: DE (occurrence: DE)
  Receive Date: 20131007
  Receipt Date: 20131007
  Transmission Date: 20140711
  Serious: Yes (Congenital Anomaly)
  Sender: FDA-Public Use
  Company Number: DE-GLAXOSMITHKLINE-D0081274A

PATIENT
  Sex: Female
  Weight: 3.3 kg

DRUGS (2)
  1. LAMICTAL [Suspect]
     Indication: EPILEPSY
     Route: 064
  2. RIVOTRIL [Suspect]
     Indication: EPILEPSY
     Route: 064

REACTIONS (6)
  - Pulmonary valve stenosis [Recovered/Resolved]
  - Atrial septal defect [Recovering/Resolving]
  - Thrombocytosis [Recovered/Resolved]
  - Aspartate aminotransferase increased [Recovered/Resolved]
  - Alanine aminotransferase increased [Recovered/Resolved]
  - Foetal exposure during pregnancy [Unknown]
